FAERS Safety Report 16845849 (Version 1)
Quarter: 2019Q3

REPORT INFORMATION
  Report Type: Spontaneous
  Country: US (occurrence: US)
  Receive Date: 20190924
  Receipt Date: 20190924
  Transmission Date: 20191005
  Serious: No
  Sender: FDA-Public Use
  Company Number: US-CATALYST PHARMACEUTICALS, INC-2019CAT00208

PATIENT
  Sex: Female
  Weight: 49.89 kg

DRUGS (7)
  1. FIRDAPSE [Suspect]
     Active Substance: AMIFAMPRIDINE
     Dosage: 20 MG, 2X/DAY (DAILY DOSING SEQUENCE: 15MG, 20MG, 20MG, 15MG)
     Route: 048
     Dates: start: 201906
  2. VITAMINS [Concomitant]
     Active Substance: VITAMINS
  3. FIRDAPSE [Suspect]
     Active Substance: AMIFAMPRIDINE
     Indication: MYASTHENIC SYNDROME
     Dosage: 20 MG, 4X/DAY (EVERY 4 HOURS, 80 MG DAILY)
     Route: 048
     Dates: start: 201903, end: 201906
  4. METOPROLOL. [Concomitant]
     Active Substance: METOPROLOL
  5. FIRDAPSE [Suspect]
     Active Substance: AMIFAMPRIDINE
     Dosage: 15 MG, 2X/DAY (DAILY DOSING SEQUENCE: 15MG, 20MG, 20MG, 15MG)
     Route: 048
     Dates: start: 201906
  6. LANSOPRAZOLE. [Concomitant]
     Active Substance: LANSOPRAZOLE
  7. ATORVASTATIN [Concomitant]
     Active Substance: ATORVASTATIN

REACTIONS (3)
  - Insomnia [Not Recovered/Not Resolved]
  - Paraesthesia [Not Recovered/Not Resolved]
  - Paraesthesia oral [Not Recovered/Not Resolved]

NARRATIVE: CASE EVENT DATE: 2019
